FAERS Safety Report 6144010-5 (Version None)
Quarter: 2009Q2

REPORT INFORMATION
  Report Type: 
  Country: None (occurrence: None)
  Receive Date: 20090406
  Receipt Date: 20090401
  Transmission Date: 20091009
  Serious: Yes (Hospitalization)
  Sender: FDA-Public Use
  Company Number: US-BRISTOL-MYERS SQUIBB COMPANY-14555098

PATIENT
  Age: 83 Year
  Sex: Male

DRUGS (1)
  1. DASATINIB [Suspect]
     Indication: LEUKAEMIA
     Dosage: INTERRUPTED ON 11MAR09
     Route: 048
     Dates: start: 20050512

REACTIONS (1)
  - THROMBOSIS [None]
